FAERS Safety Report 5385659-7 (Version None)
Quarter: 2007Q3

REPORT INFORMATION
  Report Type: 
  Country: None (occurrence: None)
  Receive Date: 20070712
  Receipt Date: 20070703
  Transmission Date: 20080115
  Serious: Yes (Other)
  Sender: FDA-Public Use
  Company Number: US-PFIZER INC-2006067542

PATIENT

DRUGS (1)
  1. CELEBREX [Suspect]

REACTIONS (2)
  - SURGERY [None]
  - ULCER HAEMORRHAGE [None]
